FAERS Safety Report 7316445-6 (Version None)
Quarter: 2011Q1

REPORT INFORMATION
  Report Type: 
  Country: None (occurrence: None)
  Receive Date: 20110225
  Receipt Date: 20110216
  Transmission Date: 20110831
  Serious: Yes (Hospitalization, Disabling, Other)
  Sender: FDA-Public Use
  Company Number: US-MERCK-1003USA00724

PATIENT
  Age: 55 Year
  Sex: Female
  Weight: 54 kg

DRUGS (8)
  1. FOSAMAX [Suspect]
     Indication: OSTEOPOROSIS
     Route: 048
     Dates: start: 19960901
  2. PROVERA [Concomitant]
     Indication: HORMONE REPLACEMENT THERAPY
     Route: 065
     Dates: start: 19900101, end: 20020802
  3. FOSAMAX [Suspect]
     Indication: PROPHYLAXIS
     Route: 048
     Dates: start: 19960901
  4. PREMARIN [Concomitant]
     Indication: HORMONE REPLACEMENT THERAPY
     Route: 065
     Dates: start: 19900101, end: 20020802
  5. FOSAMAX [Suspect]
     Route: 048
     Dates: start: 20041116, end: 20080801
  6. SYNTHROID [Concomitant]
     Indication: HYPOTHYROIDISM
     Route: 065
     Dates: start: 19860101
  7. FOSAMAX [Suspect]
     Route: 048
     Dates: start: 20041116, end: 20080801
  8. FOSAMAX PLUS D [Suspect]
     Indication: OSTEOPENIA
     Route: 048
     Dates: start: 20051201, end: 20081201

REACTIONS (64)
  - FEMUR FRACTURE [None]
  - INTERVERTEBRAL DISC DEGENERATION [None]
  - UPPER MOTOR NEURONE LESION [None]
  - PALPITATIONS [None]
  - INTERVERTEBRAL DISC DISORDER [None]
  - DERMATITIS CONTACT [None]
  - DIZZINESS [None]
  - URINARY TRACT INFECTION [None]
  - PRURITUS ALLERGIC [None]
  - FATIGUE [None]
  - MUSCULAR WEAKNESS [None]
  - MUSCLE SPASMS [None]
  - MYALGIA [None]
  - LOW TURNOVER OSTEOPATHY [None]
  - ANGIOPATHY [None]
  - FOOD ALLERGY [None]
  - POSTMENOPAUSAL HAEMORRHAGE [None]
  - NAUSEA [None]
  - COMPUTERISED TOMOGRAM CORONARY ARTERY ABNORMAL [None]
  - BRONCHITIS [None]
  - ANAEMIA [None]
  - BLOOD CREATINE PHOSPHOKINASE INCREASED [None]
  - GASTROOESOPHAGEAL REFLUX DISEASE [None]
  - LUMBAR RADICULOPATHY [None]
  - KYPHOSIS [None]
  - VARICOSE VEIN [None]
  - SCOLIOSIS [None]
  - HYPERCHOLESTEROLAEMIA [None]
  - STRESS FRACTURE [None]
  - CONSTIPATION [None]
  - DEEP VEIN THROMBOSIS [None]
  - MITRAL VALVE INCOMPETENCE [None]
  - HYPOTENSION [None]
  - OSTEOPENIA [None]
  - OESOPHAGITIS [None]
  - NODULE [None]
  - INSOMNIA [None]
  - HYPERLIPIDAEMIA [None]
  - FALL [None]
  - OSTEOCHONDROMA [None]
  - FOOT DEFORMITY [None]
  - GRIEF REACTION [None]
  - FIBROMA [None]
  - UTERINE POLYP [None]
  - DRUG HYPERSENSITIVITY [None]
  - LIMB INJURY [None]
  - HERPES ZOSTER [None]
  - DIVERTICULUM [None]
  - BACK DISORDER [None]
  - OSTEOPOROSIS [None]
  - FRACTURE NONUNION [None]
  - GAIT DISTURBANCE [None]
  - EXOSTOSIS [None]
  - INTERVERTEBRAL DISC PROTRUSION [None]
  - UTERINE LEIOMYOMA [None]
  - CARDIAC MURMUR [None]
  - SPONDYLOLISTHESIS [None]
  - PAIN IN EXTREMITY [None]
  - HAEMORRHOIDS [None]
  - INCREASED TENDENCY TO BRUISE [None]
  - HIATUS HERNIA [None]
  - OSTEOARTHRITIS [None]
  - DERMATITIS ALLERGIC [None]
  - ARTHRITIS [None]
